FAERS Safety Report 6916111-2 (Version None)
Quarter: 2010Q3

REPORT INFORMATION
  Report Type: 
  Country: None (occurrence: None)
  Receive Date: 20100810
  Receipt Date: 20100803
  Transmission Date: 20110219
  Serious: No
  Sender: FDA-Public Use
  Company Number: US-BIOGENIDEC-2010BI026613

PATIENT
  Age: 24 Year
  Sex: Female

DRUGS (1)
  1. TYSABRI [Suspect]
     Indication: CROHN'S DISEASE
     Route: 042
     Dates: start: 20100303

REACTIONS (11)
  - ABDOMINAL PAIN [None]
  - AMNESIA [None]
  - ANXIETY [None]
  - ASTHENIA [None]
  - ASTHMA [None]
  - CONSTIPATION [None]
  - DECREASED APPETITE [None]
  - HYPOAESTHESIA [None]
  - INSOMNIA [None]
  - NEURALGIA [None]
  - PARAESTHESIA [None]
